FAERS Safety Report 5161549-X (Version None)
Quarter: 2006Q4

REPORT INFORMATION
  Report Type: 
  Country: None (occurrence: None)
  Receive Date: 20061130
  Receipt Date: 20060908
  Transmission Date: 20070319
  Serious: No
  Sender: FDA-Public Use
  Company Number: US-GLAXOSMITHKLINE-A0619568A

PATIENT
  Age: 36 Year
  Sex: Female

DRUGS (5)
  1. WELLBUTRIN XL [Suspect]
     Indication: BIPOLAR DISORDER
     Dosage: 150MG PER DAY
     Route: 048
     Dates: start: 20060901, end: 20060905
  2. TOPAMAX [Concomitant]
  3. VISTARIL [Concomitant]
  4. LEVBID [Concomitant]
  5. LOMOTIL [Concomitant]

REACTIONS (6)
  - FEELING ABNORMAL [None]
  - FEELING JITTERY [None]
  - INSOMNIA [None]
  - PALPITATIONS [None]
  - PARAESTHESIA ORAL [None]
  - TINNITUS [None]
